FAERS Safety Report 7531894-9 (Version None)
Quarter: 2011Q2

REPORT INFORMATION
  Report Type: 
  Country: None (occurrence: None)
  Receive Date: 20110608
  Receipt Date: 20110525
  Transmission Date: 20111010
  Serious: Yes (Hospitalization, Other)
  Sender: FDA-Public Use
  Company Number: US-BAYER-2010-002571

PATIENT
  Age: 25 Year
  Sex: Female
  Weight: 95.238 kg

DRUGS (3)
  1. TYLENOL-500 [Concomitant]
  2. YASMIN [Suspect]
     Indication: PRODUCT USED FOR UNKNOWN INDICATION
     Dosage: UNK
     Dates: start: 20060901, end: 20070301
  3. PEPTO-BISMOL [Concomitant]

REACTIONS (6)
  - GALLBLADDER DISORDER [None]
  - CHOLECYSTITIS ACUTE [None]
  - DEEP VEIN THROMBOSIS [None]
  - CHOLECYSTITIS CHRONIC [None]
  - PANCREATITIS [None]
  - PAIN [None]
